FAERS Safety Report 20309059 (Version 1)
Quarter: 2022Q1

REPORT INFORMATION
  Report Type: Spontaneous
  Country: NL (occurrence: NL)
  Receive Date: 20220107
  Receipt Date: 20220107
  Transmission Date: 20220423
  Serious: Yes (Death, Other)
  Sender: FDA-Public Use
  Company Number: NL-ASTELLAS-2022US000464

PATIENT
  Age: 19 Year
  Sex: Male

DRUGS (2)
  1. TACROLIMUS [Suspect]
     Active Substance: TACROLIMUS
     Indication: Prophylaxis against transplant rejection
     Dosage: UNK UNK, UNKNOWN FREQ.
     Route: 065
  2. SIROLIMUS [Concomitant]
     Active Substance: SIROLIMUS
     Indication: Prophylaxis against transplant rejection
     Dosage: UNK UNK, UNKNOWN FREQ.
     Route: 065

REACTIONS (1)
  - Thrombotic microangiopathy [Fatal]
